FAERS Safety Report 5548749-1 (Version None)
Quarter: 2007Q4

REPORT INFORMATION
  Report Type: 
  Country: None (occurrence: None)
  Receive Date: 20071206
  Receipt Date: 20071122
  Transmission Date: 20080405
  Serious: Yes (Other)
  Sender: FDA-Public Use
  Company Number: 2007S1012417

PATIENT
  Age: 41 Year
  Sex: Female
  Weight: 108 kg

DRUGS (1)
  1. CITALOPRAM HYDROBROMIDE [Suspect]
     Indication: DEPRESSION
     Dosage: 10 MG; DAILY; ORAL
     Route: 048
     Dates: start: 20071002, end: 20071030

REACTIONS (2)
  - DEAFNESS BILATERAL [None]
  - DEAFNESS TRANSITORY [None]
